FAERS Safety Report 6182378-4 (Version None)
Quarter: 2009Q2

REPORT INFORMATION
  Report Type: 
  Country: None (occurrence: None)
  Receive Date: 20090507
  Receipt Date: 20090506
  Transmission Date: 20091009
  Serious: Yes (Hospitalization)
  Sender: FDA-Public Use
  Company Number: PHHO2006US02673

PATIENT
  Sex: Female
  Weight: 91.5 kg

DRUGS (11)
  1. CIBADREX T29368+ [Suspect]
     Indication: HYPERTENSION
     Dosage: LEVEL 1
     Route: 048
     Dates: start: 20050121, end: 20050203
  2. CIBADREX T29368+ [Suspect]
     Dosage: LEVEL 3
     Route: 048
     Dates: start: 20050204, end: 20050303
  3. CIBADREX T29368+ [Suspect]
     Dosage: UNK, LEVEL 3
     Route: 048
     Dates: start: 20050304, end: 20060201
  4. CIBADREX T29368+ [Suspect]
     Dosage: UNK, NO TREATMENT
     Dates: start: 20060202, end: 20060203
  5. CIBADREX T29368+ [Suspect]
     Dosage: UNK, LEVEL 3
     Route: 048
     Dates: start: 20060204, end: 20060210
  6. ATENOLOL [Suspect]
     Dosage: 25 MG, BID
  7. DOXAZOSIN MESYLATE [Concomitant]
     Indication: HYPERTENSION
     Dosage: 2 MG, UNK
     Dates: start: 20050325, end: 20050407
  8. DOXAZOSIN MESYLATE [Concomitant]
     Dosage: 4 MG, UNK
     Dates: start: 20050411, end: 20060121
  9. LANTUS [Concomitant]
     Indication: DIABETES MELLITUS
     Dosage: 50 UNITS, DAILY
     Route: 058
  10. LANTUS [Concomitant]
     Dosage: 60 UNK, QD
     Route: 058
  11. GLUCOTROL [Concomitant]
     Indication: DIABETES MELLITUS
     Dosage: 20 MG, BID
     Route: 048

REACTIONS (21)
  - ASTHENIA [None]
  - BLOOD CREATININE INCREASED [None]
  - BLOOD GLUCOSE INCREASED [None]
  - CARBON DIOXIDE DECREASED [None]
  - CHILLS [None]
  - DIABETIC KETOACIDOSIS [None]
  - DYSPNOEA [None]
  - FATIGUE [None]
  - HYPERHIDROSIS [None]
  - HYPERKALAEMIA [None]
  - NAUSEA [None]
  - NODAL ARRHYTHMIA [None]
  - ORTHOSTATIC HYPOTENSION [None]
  - PNEUMONIA [None]
  - PULMONARY EMBOLISM [None]
  - RENAL ARTERY STENOSIS [None]
  - RENAL FAILURE ACUTE [None]
  - SEPSIS [None]
  - SINUS HEADACHE [None]
  - SINUSITIS [None]
  - URINE OUTPUT DECREASED [None]
